FAERS Safety Report 10763236 (Version 1)
Quarter: 2015Q1

REPORT INFORMATION
  Report Type: Spontaneous
  Country: TR (occurrence: TR)
  Receive Date: 20150204
  Receipt Date: 20150204
  Transmission Date: 20150721
  Serious: Yes (Hospitalization, Congenital Anomaly)
  Sender: FDA-Public Use
  Company Number: TR-NOVOPROD-436779

PATIENT
  Sex: Female
  Weight: 3 kg

DRUGS (4)
  1. NOVORAPID [Suspect]
     Active Substance: INSULIN ASPART
     Indication: GESTATIONAL DIABETES
     Dosage: 24 U, QD
     Route: 064
     Dates: start: 20140917, end: 20141226
  2. CLEXANE [Concomitant]
     Active Substance: ENOXAPARIN SODIUM
     Indication: ANTICOAGULANT THERAPY
     Dosage: UNK
     Route: 064
     Dates: start: 201404, end: 20141212
  3. LEVEMIR [Suspect]
     Active Substance: INSULIN DETEMIR
     Indication: GESTATIONAL DIABETES
     Dosage: 16 U, QD
     Route: 064
     Dates: start: 20140917, end: 20141226
  4. ELEVIT                             /07499601/ [Concomitant]
     Indication: VITAMIN SUPPLEMENTATION
     Dosage: UNK
     Route: 064
     Dates: start: 201409, end: 20141222

REACTIONS (3)
  - Foetal exposure during pregnancy [Recovered/Resolved]
  - Caesarean section [None]
  - Pulmonary hypoplasia [Recovered/Resolved]

NARRATIVE: CASE EVENT DATE: 20140917
